FAERS Safety Report 17516500 (Version 3)
Quarter: 2021Q1

REPORT INFORMATION
  Report Type: Spontaneous
  Country: US (occurrence: US)
  Receive Date: 20200309
  Receipt Date: 20210309
  Transmission Date: 20210419
  Serious: No
  Sender: FDA-Public Use
  Company Number: US-VERTEX PHARMACEUTICALS-2020-004530

PATIENT
  Sex: Male
  Weight: 80 kg

DRUGS (25)
  1. LANTUS [Concomitant]
     Active Substance: INSULIN GLARGINE
     Dosage: 100/ML
  2. VITAMIN E [Concomitant]
     Active Substance: .ALPHA.-TOCOPHEROL
     Dosage: UNK
  3. KEFLEX [Concomitant]
     Active Substance: CEPHALEXIN
     Dosage: UNK
  4. POTASSIUM CITRATE. [Concomitant]
     Active Substance: POTASSIUM CITRATE
     Dosage: UNK
  5. HYPERSAL [Concomitant]
     Active Substance: SODIUM CHLORIDE
     Dosage: UNK
  6. FLUTICASONE + SALMETEROL [Concomitant]
     Active Substance: FLUTICASONE FUROATE\SALMETEROL XINAFOATE
  7. ALBUTEROL SULFATE. [Concomitant]
     Active Substance: ALBUTEROL SULFATE
     Dosage: UNK
  8. SERTRALINE [Concomitant]
     Active Substance: SERTRALINE HYDROCHLORIDE
     Dosage: UNK
  9. VITAMIN K [PHYTOMENADIONE] [Concomitant]
     Dosage: UNK
  10. HUMALOG [Concomitant]
     Active Substance: INSULIN LISPRO
     Dosage: 100/ML VIAL
  11. LACTULOSE. [Concomitant]
     Active Substance: LACTULOSE
     Dosage: UNK
  12. POLYETHYLENE GLYCOL [Concomitant]
     Active Substance: POLYETHYLENE GLYCOLS
     Dosage: 1450 POWDER
  13. URSODIOL. [Concomitant]
     Active Substance: URSODIOL
     Dosage: 100% POWDER
  14. AZTREONAM. [Concomitant]
     Active Substance: AZTREONAM
     Dosage: UNK
  15. VITAMIN A [RETINOL] [Concomitant]
     Active Substance: RETINOL
     Dosage: 10000 UNIT CAPSULE
  16. LAMICTAL [Concomitant]
     Active Substance: LAMOTRIGINE
     Dosage: UNK
  17. TOBRAMYCIN. [Concomitant]
     Active Substance: TOBRAMYCIN
     Dosage: UNK
  18. TRIKAFTA [Suspect]
     Active Substance: ELEXACAFTOR\IVACAFTOR\TEZACAFTOR
     Indication: CYSTIC FIBROSIS
     Dosage: 100/50/75MG, BID
     Route: 048
  19. ZENPEP [Concomitant]
     Active Substance: PANCRELIPASE AMYLASE\PANCRELIPASE LIPASE\PANCRELIPASE PROTEASE
     Dosage: 10?32?42 K
  20. CETIRIZ?D [Concomitant]
     Dosage: 5 MG? 120 MG TAB
  21. PULMOZYME [Concomitant]
     Active Substance: DORNASE ALFA
     Dosage: 2.5 MG
     Route: 055
  22. ZOFRAN [Concomitant]
     Active Substance: ONDANSETRON HYDROCHLORIDE
     Dosage: UNK
  23. AZITHROMYCIN ANHYDROUS. [Concomitant]
     Active Substance: AZITHROMYCIN ANHYDROUS
     Dosage: UNK
  24. PRILOSEC [Concomitant]
     Active Substance: OMEPRAZOLE MAGNESIUM
     Dosage: UNK
  25. ZOFRAN [Concomitant]
     Active Substance: ONDANSETRON HYDROCHLORIDE
     Dosage: 4 MG

REACTIONS (1)
  - Agitation [Recovered/Resolved]
